FAERS Safety Report 6822761-4 (Version None)
Quarter: 2010Q3

REPORT INFORMATION
  Report Type: 
  Country: None (occurrence: None)
  Receive Date: 20100708
  Receipt Date: 20100628
  Transmission Date: 20110219
  Serious: Yes (Hospitalization)
  Sender: FDA-Public Use
  Company Number: JP-ROCHE-709738

PATIENT
  Age: 46 Year
  Sex: Female

DRUGS (2)
  1. PEG-INTRON [Suspect]
     Dosage: DOSAGE IS UNCERTAIN.
     Route: 058
     Dates: start: 20081001
  2. REBETOL [Suspect]
     Dosage: DOSAGE IS UNCERTAIN.
     Route: 048
     Dates: start: 20081001

REACTIONS (2)
  - BASEDOW'S DISEASE [None]
  - TYPE 1 DIABETES MELLITUS [None]
